FAERS Safety Report 6902076-6 (Version None)
Quarter: 2010Q3

REPORT INFORMATION
  Report Type: 
  Country: None (occurrence: None)
  Receive Date: 20100803
  Receipt Date: 20080417
  Transmission Date: 20110219
  Serious: No
  Sender: FDA-Public Use
  Company Number: US-PFIZER INC-2008030420

PATIENT
  Sex: Male
  Weight: 63.5 kg

DRUGS (6)
  1. LYRICA [Suspect]
     Indication: NEURALGIA
     Dates: start: 20070101
  2. DIAZEPAM [Concomitant]
  3. CELEBREX [Concomitant]
  4. METHADONE HCL [Concomitant]
  5. OXYCONTIN [Concomitant]
  6. SKELAXIN [Concomitant]

REACTIONS (2)
  - DRUG INEFFECTIVE [None]
  - MUSCLE SPASMS [None]
